FAERS Safety Report 24527383 (Version 2)
Quarter: 2024Q4

REPORT INFORMATION
  Report Type: Report from Study
  Country: CO (occurrence: CO)
  Receive Date: 20241021
  Receipt Date: 20241028
  Transmission Date: 20250115
  Serious: Yes (Other)
  Sender: ASTELLAS
  Company Number: CO-ASTELLAS-2024-AER-006209

PATIENT
  Age: 59 Year
  Sex: Male
  Weight: 90 kg

DRUGS (3)
  1. ENZALUTAMIDE [Suspect]
     Active Substance: ENZALUTAMIDE
     Indication: Hormone-refractory prostate cancer
     Route: 048
     Dates: start: 20240205, end: 202407
  2. ENZALUTAMIDE [Suspect]
     Active Substance: ENZALUTAMIDE
     Dosage: ONGOING
     Route: 050
  3. Leuprolide Acid [Concomitant]
     Indication: Product used for unknown indication
     Dosage: EVERY 6 MONTHS
     Route: 065
     Dates: start: 202407

REACTIONS (1)
  - Pituitary tumour benign [Unknown]
